FAERS Safety Report 8147882 (Version 4)
Quarter: 2012Q4

REPORT INFORMATION
  Report Type: 
  Country: US (occurrence: US)
  Receive Date: 20110922
  Receipt Date: 20121221
  Transmission Date: 20130627
  Serious: No
  Sender: FDA-Public Use
  Company Number: US-ASTRAZENECA-2011SE04659

PATIENT
  Age: 58 Year
  Sex: Female
  Weight: 65.8 kg

DRUGS (6)
  1. OMEPRAZOLE [Suspect]
     Indication: GASTROOESOPHAGEAL REFLUX DISEASE
     Route: 048
  2. OMEPRAZOLE [Suspect]
     Indication: GASTROOESOPHAGEAL REFLUX DISEASE
     Route: 048
  3. SEROQUEL [Suspect]
     Indication: SCHIZOPHRENIA
     Route: 048
     Dates: start: 200901
  4. SEROQUEL [Suspect]
     Indication: SCHIZOPHRENIA
     Route: 048
     Dates: start: 201112
  5. BENICAR HCT [Concomitant]
     Indication: BLOOD PRESSURE ABNORMAL
     Dosage: 40/25 MG, EVERYDAY
     Route: 048
  6. NORVASC [Concomitant]
     Indication: BLOOD PRESSURE ABNORMAL
     Route: 048

REACTIONS (10)
  - Disease recurrence [Unknown]
  - Stress [Unknown]
  - Illusion [Unknown]
  - Logorrhoea [Unknown]
  - Weight increased [Recovered/Resolved]
  - Depressed mood [Unknown]
  - Confusional state [Unknown]
  - Aggression [Unknown]
  - Intentional drug misuse [Unknown]
  - Intentional drug misuse [Unknown]
